FAERS Safety Report 24259340 (Version 1)
Quarter: 2024Q3

REPORT INFORMATION
  Report Type: Report from Study
  Country: LB (occurrence: LB)
  Receive Date: 20240828
  Receipt Date: 20240828
  Transmission Date: 20241017
  Serious: Yes (Death)
  Sender: SANDOZ
  Company Number: LB-SANDOZ-SDZ2024LB075799

PATIENT
  Sex: Female

DRUGS (1)
  1. HYRIMOZ [Suspect]
     Active Substance: ADALIMUMAB-ADAZ
     Indication: Rheumatoid arthritis
     Dosage: 40 MG, Q2W (PRE-FILLED SYRINGE)
     Route: 058
     Dates: start: 20221202, end: 20240601

REACTIONS (1)
  - Cardiac disorder [Fatal]
